FAERS Safety Report 4746257-9 (Version None)
Quarter: 2005Q3

REPORT INFORMATION
  Report Type: 
  Country: None (occurrence: None)
  Receive Date: 20050816
  Receipt Date: 20050802
  Transmission Date: 20060218
  Serious: Yes (Death)
  Sender: FDA-Public Use
  Company Number: US_0505117352

PATIENT
  Age: 45 Year
  Sex: Male
  Weight: 51 kg

DRUGS (2)
  1. OLANZAPINE [Suspect]
     Indication: SCHIZOPHRENIA
     Dates: start: 20050329, end: 20050401
  2. OTHER PHARMA COMPANY INVESTIGATIONAL DRUG [Suspect]
     Indication: SCHIZOPHRENIA
     Dates: start: 20050329, end: 20050401

REACTIONS (16)
  - BLOOD TRIGLYCERIDES INCREASED [None]
  - ELECTROCARDIOGRAM QRS COMPLEX PROLONGED [None]
  - GAMMA-GLUTAMYLTRANSFERASE INCREASED [None]
  - HEPATIC CIRRHOSIS [None]
  - HEPATOSPLENOMEGALY [None]
  - HIGH DENSITY LIPOPROTEIN DECREASED [None]
  - INSOMNIA [None]
  - MONOCYTE PERCENTAGE INCREASED [None]
  - MOUTH HAEMORRHAGE [None]
  - OVERDOSE [None]
  - PLATELET COUNT DECREASED [None]
  - PULMONARY CONGESTION [None]
  - RED BLOOD CELL BURR CELLS PRESENT [None]
  - SKIN LACERATION [None]
  - VERY LOW DENSITY LIPOPROTEIN INCREASED [None]
  - WEIGHT INCREASED [None]
